FAERS Safety Report 7317599-8 (Version None)
Quarter: 2011Q1

REPORT INFORMATION
  Report Type: 
  Country: None (occurrence: None)
  Receive Date: 20110226
  Receipt Date: 20101201
  Transmission Date: 20110831
  Serious: No
  Sender: FDA-Public Use
  Company Number: US-ALLERGAN-1015023US

PATIENT
  Age: 57 Year
  Sex: Female

DRUGS (2)
  1. JUVEDERM [Concomitant]
     Indication: SKIN WRINKLING
     Dosage: UNK
     Dates: start: 20100501, end: 20100501
  2. BOTOX COSMETIC [Suspect]
     Indication: SKIN WRINKLING
     Dosage: 8 UNITS, SINGLE
     Dates: start: 20100501, end: 20100501

REACTIONS (4)
  - MUSCULAR WEAKNESS [None]
  - DRY MOUTH [None]
  - LIP DISORDER [None]
  - FACIAL PARESIS [None]
